FAERS Safety Report 15705736 (Version 7)
Quarter: 2019Q3

REPORT INFORMATION
  Report Type: Report from Study
  Country: JP (occurrence: JP)
  Receive Date: 20181210
  Receipt Date: 20190918
  Transmission Date: 20191004
  Serious: Yes (Hospitalization, Other)
  Sender: FDA-Public Use
  Company Number: JP-BRISTOL-MYERS SQUIBB COMPANY-BMS-2018-114427

PATIENT
  Age: 75 Year
  Sex: Male
  Weight: 68 kg

DRUGS (2)
  1. NIVOLUMAB [Suspect]
     Active Substance: NIVOLUMAB
     Indication: RENAL CELL CARCINOMA
     Dosage: 240 MILLIGRAM
     Route: 041
     Dates: start: 20181016, end: 20181106
  2. IPILIMUMAB [Suspect]
     Active Substance: IPILIMUMAB
     Indication: RENAL CELL CARCINOMA
     Dosage: 68 MILLIGRAM
     Route: 041
     Dates: start: 20181016, end: 20181106

REACTIONS (6)
  - Shock [Recovered/Resolved]
  - Thyroiditis [Recovering/Resolving]
  - Rash [Recovered/Resolved]
  - Off label use [Unknown]
  - Hypotension [Recovered/Resolved]
  - Interstitial lung disease [Recovered/Resolved]

NARRATIVE: CASE EVENT DATE: 20181121
